FAERS Safety Report 6502870-X (Version None)
Quarter: 2009Q4

REPORT INFORMATION
  Report Type: 
  Country: None (occurrence: None)
  Receive Date: 20091201
  Receipt Date: 20090302
  Transmission Date: 20100525
  Serious: Yes (Other)
  Sender: FDA-Public Use
  Company Number: 186690USA

PATIENT
  Age: 63 Year
  Sex: Male

DRUGS (5)
  1. RIBAVIRIN CAPSULES 200MG (RIBAVIRIN) [Suspect]
     Indication: HEPATITIS C
     Dosage: ORAL
     Route: 048
     Dates: start: 20080307, end: 20090129
  2. INTERFERON [Suspect]
     Indication: HEPATITIS C
     Dates: start: 20080307, end: 20090129
  3. PARACETAMOL [Concomitant]
  4. MYCOPHENOLATE MOFETIL [Concomitant]
  5. EPOGEN [Concomitant]

REACTIONS (6)
  - ARTHRALGIA [None]
  - GOUT [None]
  - HAEMOLYTIC ANAEMIA [None]
  - HYPOPHAGIA [None]
  - PAIN [None]
  - SYNOVIAL FLUID CRYSTAL PRESENT [None]
